FAERS Safety Report 15420467 (Version 1)
Quarter: 2018Q3

REPORT INFORMATION
  Report Type: Spontaneous
  Country: US (occurrence: US)
  Receive Date: 20180924
  Receipt Date: 20180924
  Transmission Date: 20181010
  Serious: No
  Sender: FDA-Public Use
  Company Number: US-ALLERGAN-1821577US

PATIENT
  Age: 54 Year
  Sex: Female
  Weight: 58.96 kg

DRUGS (3)
  1. LINZESS [Suspect]
     Active Substance: LINACLOTIDE
     Indication: CONSTIPATION
     Dosage: 145 ?G, QD
     Route: 048
     Dates: start: 2016
  2. LINZESS [Suspect]
     Active Substance: LINACLOTIDE
     Dosage: 290 ?G, UNK
     Route: 048
     Dates: start: 2016, end: 20180412
  3. MAGNESIUM CITRATE. [Concomitant]
     Active Substance: MAGNESIUM CITRATE
     Indication: CONSTIPATION
     Route: 065

REACTIONS (7)
  - Drug dose omission [Unknown]
  - Intentional product misuse [Unknown]
  - Off label use [Unknown]
  - Therapeutic response decreased [Unknown]
  - Flatulence [Not Recovered/Not Resolved]
  - Drug effect variable [Unknown]
  - Shoulder operation [Unknown]

NARRATIVE: CASE EVENT DATE: 2016
